FAERS Safety Report 13835956 (Version 10)
Quarter: 2018Q4

REPORT INFORMATION
  Report Type: Spontaneous
  Country: US (occurrence: US)
  Receive Date: 20170804
  Receipt Date: 20181108
  Transmission Date: 20190204
  Serious: Yes (Other)
  Sender: FDA-Public Use
  Company Number: US-CELGENEUS-USA-20170710067

PATIENT
  Sex: Female
  Weight: 81.72 kg

DRUGS (2)
  1. REVLIMID [Suspect]
     Active Substance: LENALIDOMIDE
     Indication: PLASMA CELL MYELOMA
     Dosage: 10 MILLIGRAM
     Route: 048
     Dates: start: 20170411
  2. REVLIMID [Suspect]
     Active Substance: LENALIDOMIDE
     Dosage: 5 MILLIGRAM
     Route: 048
     Dates: start: 201708

REACTIONS (12)
  - Deep vein thrombosis [Unknown]
  - Joint swelling [Recovered/Resolved with Sequelae]
  - Decreased appetite [Unknown]
  - Diarrhoea [Recovered/Resolved with Sequelae]
  - Alopecia [Unknown]
  - Dysgeusia [Unknown]
  - Multiple allergies [Unknown]
  - Myalgia [Unknown]
  - Musculoskeletal stiffness [Unknown]
  - Gait disturbance [Unknown]
  - Upper respiratory tract infection [Unknown]
  - Sciatica [Recovered/Resolved with Sequelae]

NARRATIVE: CASE EVENT DATE: 2017
